FAERS Safety Report 21045981 (Version 1)
Quarter: 2022Q3

REPORT INFORMATION
  Report Type: Spontaneous
  Country: US (occurrence: US)
  Receive Date: 20220706
  Receipt Date: 20220706
  Transmission Date: 20221026
  Serious: No
  Sender: FDA-Public Use
  Company Number: US-JNJFOC-20220657191

PATIENT
  Sex: Female

DRUGS (3)
  1. SPRAVATO [Suspect]
     Active Substance: ESKETAMINE
     Indication: Depression
     Route: 065
     Dates: start: 2021
  2. EFFEXOR [Concomitant]
     Active Substance: VENLAFAXINE HYDROCHLORIDE
  3. HALDOL [Concomitant]
     Active Substance: HALOPERIDOL

REACTIONS (4)
  - Nervousness [Unknown]
  - Weight decreased [Unknown]
  - Insomnia [Unknown]
  - Product dose omission issue [Unknown]
